FAERS Safety Report 9161229 (Version 2)
Quarter: 2013Q2

REPORT INFORMATION
  Report Type: Spontaneous
  Country: FR (occurrence: FR)
  Receive Date: 20130313
  Receipt Date: 20130507
  Transmission Date: 20140414
  Serious: Yes (Hospitalization)
  Sender: FDA-Public Use
  Company Number: FR-GLAXOSMITHKLINE-B0872528A

PATIENT
  Age: 69 Year
  Sex: Female

DRUGS (8)
  1. ARIXTRA [Suspect]
     Indication: SPLENECTOMY
     Dosage: 2.5MG PER DAY
     Route: 058
     Dates: start: 20130123, end: 20130127
  2. KARDEGIC [Suspect]
     Indication: SPLENECTOMY
     Dosage: 75MG PER DAY
     Route: 048
     Dates: start: 20130123, end: 20130127
  3. PARACETAMOL [Concomitant]
     Indication: PRODUCT USED FOR UNKNOWN INDICATION
     Route: 065
  4. LEVOTHYROX [Concomitant]
     Indication: PRODUCT USED FOR UNKNOWN INDICATION
     Dosage: 100MCG PER DAY
     Route: 065
  5. DEBRIDAT [Concomitant]
     Indication: PRODUCT USED FOR UNKNOWN INDICATION
     Dosage: 100MG THREE TIMES PER DAY
     Route: 065
  6. DIFFU K [Concomitant]
     Indication: PRODUCT USED FOR UNKNOWN INDICATION
     Route: 065
  7. PENICILLIN G [Concomitant]
     Indication: PRODUCT USED FOR UNKNOWN INDICATION
     Dosage: 1MU THREE TIMES PER DAY
     Route: 048
  8. CHEMOTHERAPY [Concomitant]
     Indication: PRODUCT USED FOR UNKNOWN INDICATION
     Route: 065
     Dates: start: 201301

REACTIONS (10)
  - Haematoma [Recovering/Resolving]
  - Anaemia [Recovered/Resolved]
  - Abdominal pain upper [Unknown]
  - Vomiting [Unknown]
  - Pain [Unknown]
  - Abdominal rigidity [Unknown]
  - Abdominal tenderness [Unknown]
  - Gastrointestinal sounds abnormal [Unknown]
  - Arterial haemorrhage [Unknown]
  - Drug interaction [Unknown]
